FAERS Safety Report 26146227 (Version 1)
Quarter: 2025Q4

REPORT INFORMATION
  Report Type: Report from Study
  Country: US (occurrence: US)
  Receive Date: 20251211
  Receipt Date: 20251211
  Transmission Date: 20260117
  Serious: No
  Sender: MALLINCKRODT
  Company Number: US-MALLINCKRODT-MNK202507903

PATIENT
  Sex: Female

DRUGS (9)
  1. CORTICOTROPIN [Suspect]
     Active Substance: CORTICOTROPIN
     Indication: Systemic lupus erythematosus
     Dosage: UNKNOWN
  2. CORTICOTROPIN [Suspect]
     Active Substance: CORTICOTROPIN
     Indication: Polyarteritis nodosa
  3. CORTICOTROPIN [Suspect]
     Active Substance: CORTICOTROPIN
     Indication: Eosinophilic granulomatosis with polyangiitis
  4. CORTICOTROPIN [Suspect]
     Active Substance: CORTICOTROPIN
     Indication: Stevens-Johnson syndrome
  5. CORTICOTROPIN [Suspect]
     Active Substance: CORTICOTROPIN
     Indication: Toxic epidermal necrolysis
  6. CORTICOTROPIN [Suspect]
     Active Substance: CORTICOTROPIN
     Indication: Overlap syndrome
  7. CORTICOTROPIN [Suspect]
     Active Substance: CORTICOTROPIN
     Indication: Stevens-Johnson syndrome
  8. CORTICOTROPIN [Suspect]
     Active Substance: CORTICOTROPIN
     Indication: Toxic epidermal necrolysis
  9. CORTICOTROPIN [Suspect]
     Active Substance: CORTICOTROPIN
     Indication: Overlap syndrome

REACTIONS (1)
  - Flatulence [Unknown]
